FAERS Safety Report 21265810 (Version 7)
Quarter: 2022Q4

REPORT INFORMATION
  Report Type: Report from Study
  Country: JP (occurrence: JP)
  Receive Date: 20220829
  Receipt Date: 20221014
  Transmission Date: 20230112
  Serious: Yes (Death)
  Sender: FDA-Public Use
  Company Number: JP-PFIZER INC-PV202200048980

PATIENT
  Age: 70 Year
  Sex: Female
  Weight: 54.1 kg

DRUGS (15)
  1. NIRMATRELVIR\RITONAVIR [Suspect]
     Active Substance: NIRMATRELVIR\RITONAVIR
     Indication: COVID-19 treatment
     Dosage: [PF-07321332 300 MG]/[RITONAVIR 100 MG]; 2X/DAY
     Route: 048
     Dates: start: 20220224, end: 20220224
  2. NIRMATRELVIR\RITONAVIR [Suspect]
     Active Substance: NIRMATRELVIR\RITONAVIR
     Dosage: [PF-07321332 300 MG]/[RITONAVIR 100 MG]; 2X/DAY
     Route: 048
     Dates: start: 20220225, end: 20220228
  3. NIRMATRELVIR\RITONAVIR [Suspect]
     Active Substance: NIRMATRELVIR\RITONAVIR
     Dosage: [PF-07321332 300 MG]/[RITONAVIR 100 MG]; 2X/DAY
     Route: 048
     Dates: start: 20220301, end: 20220301
  4. HERBALS [Concomitant]
     Active Substance: HERBALS
     Dosage: UNK
     Route: 048
     Dates: end: 20220316
  5. MESALAMINE [Concomitant]
     Active Substance: MESALAMINE
     Dosage: UNK
     Route: 048
     Dates: end: 20220316
  6. MOSAPRIDE [Concomitant]
     Active Substance: MOSAPRIDE
     Dosage: UNK
     Route: 048
     Dates: end: 20220316
  7. BEPOTASTINE [Concomitant]
     Active Substance: BEPOTASTINE
     Dosage: UNK
     Route: 048
     Dates: end: 20220316
  8. VONOPRAZAN FUMARATE [Concomitant]
     Active Substance: VONOPRAZAN FUMARATE
     Dosage: UNK
     Route: 048
     Dates: end: 20220318
  9. METHYLCOBALAMIN [Concomitant]
     Active Substance: METHYLCOBALAMIN
     Dosage: UNK
     Route: 048
     Dates: end: 20220316
  10. ACETAMINOPHEN [Concomitant]
     Active Substance: ACETAMINOPHEN
     Dosage: UNK
     Route: 048
     Dates: end: 20220304
  11. ALFACALCIDOL [Concomitant]
     Active Substance: ALFACALCIDOL
     Dosage: UNK
     Route: 048
     Dates: end: 20220316
  12. ALENDRONIC ACID [Concomitant]
     Active Substance: ALENDRONIC ACID
     Dosage: UNK
     Route: 048
     Dates: end: 20220304
  13. OPDIVO [Concomitant]
     Active Substance: NIVOLUMAB
     Dosage: UNK
     Route: 041
     Dates: end: 20220310
  14. ACETAMINOPHEN\TRAMADOL HYDROCHLORIDE [Concomitant]
     Active Substance: ACETAMINOPHEN\TRAMADOL HYDROCHLORIDE
     Dosage: UNK
     Route: 048
     Dates: start: 20220304, end: 20220318
  15. FENTANYL [Concomitant]
     Active Substance: FENTANYL
     Indication: Pain
     Dosage: UNK
     Dates: start: 20220318, end: 20220322

REACTIONS (2)
  - Malignant neoplasm of unknown primary site [Fatal]
  - Disease progression [Fatal]

NARRATIVE: CASE EVENT DATE: 20220304
